FAERS Safety Report 8619677 (Version 2)
Quarter: 2013Q3

REPORT INFORMATION
  Report Type: Report from Study
  Country: FR (occurrence: FR)
  Receive Date: 20120618
  Receipt Date: 20130730
  Transmission Date: 20140515
  Serious: Yes (Hospitalization)
  Sender: FDA-Public Use
  Company Number: FR-ROCHE-1077578

PATIENT
  Sex: Male
  Weight: 97 kg

DRUGS (9)
  1. MYCOPHENOLATE MOFETIL [Suspect]
     Indication: RENAL TRANSPLANT
     Route: 048
     Dates: start: 20080923
  2. TACROLIMUS [Suspect]
     Indication: RENAL TRANSPLANT
     Route: 048
     Dates: start: 20110823, end: 20110909
  3. CORTANCYL [Concomitant]
     Route: 048
     Dates: start: 20080923
  4. LESCOL [Concomitant]
     Route: 048
  5. TOPALGIC [Concomitant]
     Route: 048
     Dates: start: 20090928
  6. INEXIUM [Concomitant]
     Route: 048
  7. IDEOS [Concomitant]
     Route: 048
  8. DOLIPRANE [Concomitant]
     Route: 065
  9. KAYEXALATE [Concomitant]
     Route: 065

REACTIONS (1)
  - HLA marker study positive [Recovered/Resolved]
